FAERS Safety Report 9419413 (Version 1)
Quarter: 2013Q3

REPORT INFORMATION
  Report Type: Spontaneous
  Country: US (occurrence: None)
  Receive Date: 20130724
  Receipt Date: 20130724
  Transmission Date: 20140515
  Serious: Yes (Hospitalization, Other)
  Sender: FDA-Public Use
  Company Number: None

PATIENT
  Age: 37 Year
  Sex: Male

DRUGS (5)
  1. BACTRIM DS [Suspect]
     Indication: FOLLICULITIS
     Route: 048
     Dates: start: 20060421, end: 20060428
  2. CEPHALEXIN [Suspect]
     Dates: start: 20060601, end: 20060618
  3. ATARAX [Concomitant]
  4. BACTROBAN ONITMENT [Concomitant]
  5. PEPCID [Concomitant]

REACTIONS (5)
  - Jaundice [None]
  - Decreased appetite [None]
  - Fatigue [None]
  - Hepatitis C [None]
  - Hepatitis cholestatic [None]
